FAERS Safety Report 6337674-4 (Version None)
Quarter: 2009Q3

REPORT INFORMATION
  Report Type: 
  Country: None (occurrence: None)
  Receive Date: 20090902
  Receipt Date: 20090825
  Transmission Date: 20100115
  Serious: Yes (Hospitalization)
  Sender: FDA-Public Use
  Company Number: FR-BAXTER-2009BH013356

PATIENT
  Age: 57 Year
  Sex: Male

DRUGS (7)
  1. ENDOXAN BAXTER [Suspect]
     Indication: LYMPHOCYTIC LYMPHOMA
     Route: 048
     Dates: start: 20090327, end: 20090329
  2. ENDOXAN BAXTER [Suspect]
     Route: 048
     Dates: start: 20090423, end: 20090425
  3. FLUDARABINE PHOSPHATE [Suspect]
     Indication: LYMPHOCYTIC LYMPHOMA
     Route: 048
     Dates: start: 20090327, end: 20090329
  4. FLUDARABINE PHOSPHATE [Suspect]
     Route: 048
     Dates: start: 20090423, end: 20090425
  5. MABTHERA [Suspect]
     Indication: LYMPHOCYTIC LYMPHOMA
     Route: 042
     Dates: start: 20090325, end: 20090326
  6. MABTHERA [Suspect]
     Route: 042
     Dates: start: 20090421, end: 20090422
  7. BACTRIM DS [Concomitant]
     Indication: PROPHYLAXIS
     Route: 048
     Dates: start: 20090330, end: 20090401

REACTIONS (5)
  - ORAL MUCOSAL ERYTHEMA [None]
  - PYREXIA [None]
  - RASH MACULO-PAPULAR [None]
  - STOMATITIS [None]
  - ULCERATIVE KERATITIS [None]
